FAERS Safety Report 21902424 (Version 1)
Quarter: 2023Q1

REPORT INFORMATION
  Report Type: Spontaneous
  Country: US (occurrence: US)
  Receive Date: 20230124
  Receipt Date: 20230124
  Transmission Date: 20230418
  Serious: Yes (Other)
  Sender: FDA-Public Use
  Company Number: US-AMGEN-USASP2023011249

PATIENT
  Sex: Male

DRUGS (1)
  1. OTEZLA [Suspect]
     Active Substance: APREMILAST
     Indication: Nail psoriasis
     Dosage: 30 MILLIGRAM, QD
     Route: 065
     Dates: start: 2022

REACTIONS (2)
  - Deafness [Unknown]
  - Off label use [Unknown]
